FAERS Safety Report 4876208-8 (Version None)
Quarter: 2005Q4

REPORT INFORMATION
  Report Type: 
  Country: None (occurrence: None)
  Receive Date: 20051208
  Receipt Date: 20050922
  Transmission Date: 20060501
  Serious: Yes (Hospitalization)
  Sender: FDA-Public Use
  Company Number: 018

PATIENT
  Sex: Female
  Weight: 56.6996 kg

DRUGS (9)
  1. FAZACLO ODT [Suspect]
     Indication: MAJOR DEPRESSION
     Dosage: 400 MG DAILY
     Dates: start: 20050503, end: 20050920
  2. FAZACLO ODT [Suspect]
     Indication: PSYCHOTIC DISORDER
     Dosage: 400 MG DAILY
     Dates: start: 20050503, end: 20050920
  3. LEVOTHYROXINE SODIUM [Concomitant]
  4. NALTREXONE [Concomitant]
  5. CLONIDINE [Concomitant]
  6. TOPAMAX [Concomitant]
  7. COLACE [Concomitant]
  8. LAMICTAL [Concomitant]
  9. DITROPAN [Concomitant]

REACTIONS (1)
  - AGRANULOCYTOSIS [None]
